FAERS Safety Report 9376296 (Version 1)
Quarter: 2013Q3

REPORT INFORMATION
  Report Type: Spontaneous
  Country: DE (occurrence: DE)
  Receive Date: 20130701
  Receipt Date: 20130701
  Transmission Date: 20140515
  Serious: Yes (Hospitalization)
  Sender: FDA-Public Use
  Company Number: DE-AMGEN-DEUSP2013045494

PATIENT
  Sex: Female

DRUGS (11)
  1. NEULASTA [Suspect]
     Indication: B-CELL LYMPHOMA
     Dosage: UNK
     Route: 058
     Dates: start: 20130324, end: 20130617
  2. CYCLOPHOSPHAMIDE [Suspect]
     Indication: B-CELL LYMPHOMA
     Dosage: UNK
     Route: 042
     Dates: start: 20130320, end: 20130613
  3. DOXORUBICINE /00330901/ [Suspect]
     Indication: B-CELL LYMPHOMA
     Dosage: UNK
     Route: 042
     Dates: start: 20130320, end: 20130613
  4. VINCRISTINE [Suspect]
     Indication: B-CELL LYMPHOMA
     Dosage: UNK
     Route: 042
     Dates: start: 20130320, end: 20130613
  5. RITUXIMAB [Concomitant]
     Indication: B-CELL LYMPHOMA
     Dosage: UNK
     Route: 042
     Dates: start: 20130318, end: 20130612
  6. PREDNISONE [Concomitant]
     Indication: B-CELL LYMPHOMA
     Dosage: UNK
     Route: 065
     Dates: start: 20130320, end: 20130613
  7. PRAMIPEXOLE [Concomitant]
     Indication: PARKINSON^S DISEASE
     Dosage: 18 MG, 1 TIMES A DAY
     Route: 048
  8. PANTOPRAZOLE SODIUM [Concomitant]
     Dosage: 40 MG, 1 TIMES A DAY
  9. TRIMETHOPRIM SULFAMETHOXAZOLE [Concomitant]
     Dosage: UNK
  10. ACICLOVIR [Concomitant]
     Dosage: UNK
  11. TORSEMIDE [Concomitant]
     Dosage: UNK

REACTIONS (3)
  - Asthenia [Recovering/Resolving]
  - Nausea [Recovering/Resolving]
  - Vomiting [Recovering/Resolving]
